FAERS Safety Report 19926822 (Version 3)
Quarter: 2021Q4

REPORT INFORMATION
  Report Type: Spontaneous
  Country: US (occurrence: US)
  Receive Date: 20211007
  Receipt Date: 20211021
  Transmission Date: 20220303
  Serious: Yes (Hospitalization)
  Sender: FDA-Public Use
  Company Number: US-ROCHE-2927571

PATIENT
  Sex: Female

DRUGS (9)
  1. XOLAIR [Suspect]
     Active Substance: OMALIZUMAB
     Indication: Asthma
     Route: 058
     Dates: start: 20180406
  2. ALBUTEROL [Concomitant]
     Active Substance: ALBUTEROL
     Indication: Asthma
  3. SPIRIVA [Concomitant]
     Active Substance: TIOTROPIUM BROMIDE MONOHYDRATE
     Indication: Asthma
  4. ADVAIR HFA [Concomitant]
     Active Substance: FLUTICASONE PROPIONATE\SALMETEROL XINAFOATE
  5. FLUTICASONE [Concomitant]
     Active Substance: FLUTICASONE
     Indication: Asthma
  6. PREDNISONE [Concomitant]
     Active Substance: PREDNISONE
  7. TYLENOL [Concomitant]
     Active Substance: ACETAMINOPHEN
  8. CODEINE [Concomitant]
     Active Substance: CODEINE
  9. MORPHINE SULFATE [Concomitant]
     Active Substance: MORPHINE SULFATE

REACTIONS (1)
  - Hypersensitivity [Not Recovered/Not Resolved]
